FAERS Safety Report 4802860-9 (Version None)
Quarter: 2005Q4

REPORT INFORMATION
  Report Type: 
  Country: None (occurrence: None)
  Receive Date: 20051019
  Receipt Date: 20051011
  Transmission Date: 20060501
  Serious: Yes (Hospitalization)
  Sender: FDA-Public Use
  Company Number: US-JNJFOC-20050902052

PATIENT
  Sex: Male
  Weight: 136.08 kg

DRUGS (19)
  1. DURAGESIC-100 [Suspect]
     Route: 062
  2. DURAGESIC-100 [Suspect]
     Dosage: ONE 25 UG/HR PATCH PLUS ONE 12.5 UG/HR PATCH
     Route: 062
  3. DURAGESIC-100 [Suspect]
     Route: 062
  4. DURAGESIC-100 [Suspect]
     Route: 062
  5. MORPHINE [Suspect]
  6. LIDODERM [Concomitant]
     Indication: PAIN
     Dosage: 5%, ON 12 HOURS, OFF 12 HOURS
     Route: 062
  7. LORTAB [Concomitant]
     Route: 048
  8. LORTAB [Concomitant]
     Indication: PAIN
     Dosage: 10/500, ONE TABLET EVERY 4 HOURS AS NEEDED
     Route: 048
  9. SYNTHROID [Concomitant]
  10. SENOKOT [Concomitant]
  11. COLACE [Concomitant]
  12. TOPROL-XL [Concomitant]
  13. BACLOFEN [Concomitant]
  14. WELLBUTRIN [Concomitant]
  15. ALTACE [Concomitant]
  16. DIOVAN HCT [Concomitant]
  17. DIOVAN HCT [Concomitant]
     Dosage: 150/12.5 DAILY
  18. MIRALAX [Concomitant]
  19. NORVASC [Concomitant]

REACTIONS (2)
  - DEPRESSED LEVEL OF CONSCIOUSNESS [None]
  - RHABDOMYOLYSIS [None]
